FAERS Safety Report 7519296-2 (Version None)
Quarter: 2011Q2

REPORT INFORMATION
  Report Type: 
  Country: None (occurrence: None)
  Receive Date: 20110523
  Receipt Date: 20110517
  Transmission Date: 20111010
  Serious: Yes (Death)
  Sender: FDA-Public Use
  Company Number: DSA_45369_2011

PATIENT
  Age: 52 Year
  Sex: Male

DRUGS (4)
  1. XENAZINE [Suspect]
     Indication: HUNTINGTON'S DISEASE
     Dosage: (12.5 MG QHS), (25 MG BID), (25 MG TID ORAL)
     Route: 048
     Dates: start: 20100525
  2. XENAZINE [Suspect]
     Indication: HUNTINGTON'S DISEASE
     Dosage: (12.5 MG QHS), (25 MG BID), (25 MG TID ORAL)
     Route: 048
     Dates: end: 20110101
  3. XENAZINE [Suspect]
     Indication: HUNTINGTON'S DISEASE
     Dosage: (12.5 MG QHS), (25 MG BID), (25 MG TID ORAL)
     Route: 048
     Dates: start: 20110101
  4. TRAZODONE HCL [Concomitant]

REACTIONS (3)
  - INSOMNIA [None]
  - AGGRESSION [None]
  - DRUG INEFFECTIVE [None]
